FAERS Safety Report 12211652 (Version 7)
Quarter: 2016Q3

REPORT INFORMATION
  Report Type: Report from Study
  Country: US (occurrence: US)
  Receive Date: 20160325
  Receipt Date: 20160720
  Transmission Date: 20161109
  Serious: Yes (Hospitalization, Other)
  Sender: FDA-Public Use
  Company Number: US-EISAI MEDICAL RESEARCH-EC-2016-015555

PATIENT
  Age: 79 Year
  Sex: Male
  Weight: 99.8 kg

DRUGS (19)
  1. PEMBROLIZUMAB. [Suspect]
     Active Substance: PEMBROLIZUMAB
     Indication: MALIGNANT MELANOMA
     Route: 041
     Dates: start: 20160212, end: 20160414
  2. PYRIDIUM (AZO) [Concomitant]
  3. LENVATINIB [Suspect]
     Active Substance: LENVATINIB
     Indication: MALIGNANT MELANOMA
     Route: 048
     Dates: start: 20160212, end: 20160319
  4. CALCIUM/VITAMIN D3 [Concomitant]
  5. VITAMIN B12 [Concomitant]
     Active Substance: CYANOCOBALAMIN
  6. TESTOSTERONE. [Concomitant]
     Active Substance: TESTOSTERONE
  7. METRONIDAZOLE. [Concomitant]
     Active Substance: METRONIDAZOLE
  8. OXYCODONE [Concomitant]
     Active Substance: OXYCODONE
  9. METAMUCIL [Concomitant]
     Active Substance: PLANTAGO SEED
  10. FLAXSEED [Concomitant]
     Active Substance: FLAX SEED
  11. SIMVASTATIN. [Concomitant]
     Active Substance: SIMVASTATIN
  12. COLACE [Concomitant]
     Active Substance: DOCUSATE SODIUM
  13. MAGNESIUM SULFATE. [Concomitant]
     Active Substance: MAGNESIUM SULFATE
  14. LENVATINIB [Suspect]
     Active Substance: LENVATINIB
     Route: 048
     Dates: start: 20160419, end: 20160509
  15. CIPROFLOXACIN. [Concomitant]
     Active Substance: CIPROFLOXACIN
  16. DIPHENOXYLATE-ATROPINE [Concomitant]
  17. LENVATINIB [Suspect]
     Active Substance: LENVATINIB
     Route: 048
     Dates: start: 20160414, end: 20160415
  18. PSYLLIUM [Concomitant]
     Active Substance: PLANTAGO SEED
  19. MIRALAX [Concomitant]
     Active Substance: POLYETHYLENE GLYCOL 3350

REACTIONS (2)
  - Failure to thrive [Recovered/Resolved]
  - Dehydration [Recovered/Resolved]

NARRATIVE: CASE EVENT DATE: 20160315
